FAERS Safety Report 20034349 (Version 1)
Quarter: 2021Q4

REPORT INFORMATION
  Report Type: Spontaneous
  Country: US (occurrence: US)
  Receive Date: 20211104
  Receipt Date: 20211104
  Transmission Date: 20220303
  Serious: No
  Sender: FDA-Public Use
  Company Number: US-PERRIGO-21US006329

PATIENT
  Age: 71 Year
  Sex: Female
  Weight: 43.084 kg

DRUGS (3)
  1. DOXYLAMINE SUCCINATE [Suspect]
     Active Substance: DOXYLAMINE SUCCINATE
     Indication: Insomnia
     Dosage: 25 MG, ONCE OR TWICE
     Route: 048
     Dates: start: 202103, end: 202104
  2. DOXYLAMINE SUCCINATE [Suspect]
     Active Substance: DOXYLAMINE SUCCINATE
     Dosage: 12.5 MG, PRN
     Route: 048
     Dates: start: 202104, end: 20210508
  3. PROPRANOLOL [Concomitant]
     Active Substance: PROPRANOLOL HYDROCHLORIDE
     Indication: Essential tremor
     Dosage: UNKNOWN, UNKNOWN
     Route: 065
     Dates: start: 202104

REACTIONS (2)
  - Fatigue [Recovered/Resolved]
  - Underdose [Recovered/Resolved]

NARRATIVE: CASE EVENT DATE: 20210301
